APPROVED DRUG PRODUCT: OPTISON
Active Ingredient: ALBUMIN HUMAN
Strength: 10MG/ML
Dosage Form/Route: INJECTABLE;INJECTION
Application: N020899 | Product #001
Applicant: GE HEALTHCARE
Approved: Dec 31, 1997 | RLD: Yes | RS: Yes | Type: RX

EXCLUSIVITY:
Code: NPP | Date: May 9, 2028